FAERS Safety Report 16961074 (Version 3)
Quarter: 2019Q4

REPORT INFORMATION
  Report Type: Spontaneous
  Country: CH (occurrence: CH)
  Receive Date: 20191025
  Receipt Date: 20191119
  Transmission Date: 20200122
  Serious: Yes (Other)
  Sender: FDA-Public Use
  Company Number: CH-TEVA-2019-CH-1126273

PATIENT
  Age: 6 Year
  Sex: Female
  Weight: 21 kg

DRUGS (1)
  1. CETIRIZIN-MEPHA 10MG LACTAB [Suspect]
     Active Substance: CETIRIZINE HYDROCHLORIDE
     Dosage: TAKING 0.5-1 TABLET, TAKEN 10 TABLETS OVER 3 WEEKS OVERALL
     Route: 065
     Dates: start: 20190702

REACTIONS (6)
  - Decreased appetite [Recovered/Resolved]
  - Emotional distress [Recovered/Resolved]
  - Depression [Recovered/Resolved]
  - Emotional disorder [Recovered/Resolved]
  - Morbid thoughts [Recovered/Resolved]
  - Self-injurious ideation [Recovered/Resolved]

NARRATIVE: CASE EVENT DATE: 201907
